FAERS Safety Report 20580336 (Version 2)
Quarter: 2022Q3

REPORT INFORMATION
  Report Type: Spontaneous
  Country: US (occurrence: US)
  Receive Date: 20220311
  Receipt Date: 20220728
  Transmission Date: 20221027
  Serious: No
  Sender: FDA-Public Use
  Company Number: US-Blueprint Medicines Corporation-SP-US-2022-000608

PATIENT
  Age: 47 Year
  Sex: Male

DRUGS (1)
  1. AYVAKIT [Suspect]
     Active Substance: AVAPRITINIB
     Indication: Myelosuppression
     Route: 048
     Dates: start: 20210724

REACTIONS (5)
  - Adverse drug reaction [Unknown]
  - Full blood count abnormal [Unknown]
  - Intervertebral disc degeneration [Unknown]
  - Feeling abnormal [Unknown]
  - Sluggishness [Unknown]

NARRATIVE: CASE EVENT DATE: 20220219
